FAERS Safety Report 6404575-2 (Version None)
Quarter: 2009Q4

REPORT INFORMATION
  Report Type: 
  Country: None (occurrence: None)
  Receive Date: 20091016
  Receipt Date: 20091014
  Transmission Date: 20100525
  Serious: Yes (Death)
  Sender: FDA-Public Use
  Company Number: PHHY2009IN44247

PATIENT
  Age: 7 Year
  Sex: Male

DRUGS (1)
  1. ASUNRA [Suspect]
     Dosage: 100 MG, TID
     Route: 048

REACTIONS (2)
  - DENGUE FEVER [None]
  - SEPTIC SHOCK [None]
